FAERS Safety Report 8935723 (Version 1)
Quarter: 2012Q4

REPORT INFORMATION
  Report Type: 
  Country: US (occurrence: US)
  Receive Date: 20121130
  Receipt Date: 20121130
  Transmission Date: 20130627
  Serious: Yes (Hospitalization, Disabling, Other)
  Sender: FDA-Public Use
  Company Number: US-BRISTOL-MYERS SQUIBB COMPANY-17148255

PATIENT
  Age: 65 Year
  Sex: Male
  Weight: 146.1 kg

DRUGS (6)
  1. WARFARIN SODIUM [Suspect]
  2. ARIXTRA [Concomitant]
     Indication: COAGULOPATHY
     Dosage: Intrp and restarted with 5 mg/day and dose reduced to 2.5 mg
     Route: 058
     Dates: start: 2011, end: 2011
  3. TYLENOL [Concomitant]
  4. OMEPRAZOLE [Concomitant]
  5. VITAMIN D [Concomitant]
  6. ASPIRIN [Concomitant]

REACTIONS (6)
  - Thrombosis [Recovered/Resolved]
  - Oedema peripheral [Recovered/Resolved]
  - Back pain [Recovered/Resolved]
  - Abdominal pain [Recovered/Resolved]
  - Pain in extremity [Recovered/Resolved]
  - Haematoma [Recovered/Resolved]
